FAERS Safety Report 11630362 (Version 2)
Quarter: 2015Q4

REPORT INFORMATION
  Report Type: Spontaneous
  Country: US (occurrence: US)
  Receive Date: 20151014
  Receipt Date: 20151026
  Transmission Date: 20160304
  Serious: Yes (Death)
  Sender: FDA-Public Use
  Company Number: US-BAYER-2015-438333

PATIENT
  Age: 76 Year
  Sex: Male

DRUGS (1)
  1. ALKA-SELTZER ORIGINAL [Suspect]
     Active Substance: ANHYDROUS CITRIC ACID\ASPIRIN\SODIUM BICARBONATE
     Indication: ANALGESIC THERAPY
     Dosage: 2 DF, QD
     Route: 048

REACTIONS (2)
  - Product use issue [Unknown]
  - Bradycardia [Fatal]
